FAERS Safety Report 19907685 (Version 1)
Quarter: 2021Q3

REPORT INFORMATION
  Report Type: Report from Study
  Country: US (occurrence: US)
  Receive Date: 20210930
  Receipt Date: 20210930
  Transmission Date: 20211014
  Serious: No
  Sender: FDA-Public Use
  Company Number: NVSC2021US222370

PATIENT
  Age: 75 Year
  Sex: Male

DRUGS (1)
  1. ENTRESTO [Suspect]
     Active Substance: SACUBITRIL\VALSARTAN
     Indication: PRODUCT USED FOR UNKNOWN INDICATION
     Dosage: 24.26 MG, 24/26 MG
     Route: 048
     Dates: start: 20210828, end: 20210928

REACTIONS (2)
  - Peripheral swelling [Unknown]
  - Mood swings [Unknown]

NARRATIVE: CASE EVENT DATE: 20210828
